FAERS Safety Report 13424383 (Version 2)
Quarter: 2017Q2

REPORT INFORMATION
  Report Type: Report from Study
  Country: BE (occurrence: BE)
  Receive Date: 20170410
  Receipt Date: 20170424
  Transmission Date: 20170830
  Serious: Yes (Life-Threatening, Hospitalization)
  Sender: FDA-Public Use
  Company Number: BE-EISAI MEDICAL RESEARCH-EC-2017-023911

PATIENT
  Age: 45 Year
  Sex: Male
  Weight: 115 kg

DRUGS (10)
  1. FYCOMPA [Suspect]
     Active Substance: PERAMPANEL
     Indication: EPILEPSY
     Route: 048
     Dates: start: 20160908, end: 20160921
  2. FYCOMPA [Suspect]
     Active Substance: PERAMPANEL
     Route: 048
     Dates: start: 20161107, end: 20161201
  3. LEVETIRACETAM. [Concomitant]
     Active Substance: LEVETIRACETAM
  4. FYCOMPA [Suspect]
     Active Substance: PERAMPANEL
     Route: 048
     Dates: start: 20160922, end: 20161005
  5. FYCOMPA [Suspect]
     Active Substance: PERAMPANEL
     Route: 048
     Dates: start: 20161006, end: 20161020
  6. FYCOMPA [Suspect]
     Active Substance: PERAMPANEL
     Route: 048
     Dates: start: 20161021, end: 20161106
  7. CLORAZAPAM [Concomitant]
  8. CARBAMAZEPIN [Concomitant]
     Active Substance: CARBAMAZEPINE
  9. TOPIRAMATE. [Concomitant]
     Active Substance: TOPIRAMATE
  10. PHENYOTIN [Concomitant]
     Active Substance: PHENYTOIN

REACTIONS (2)
  - Status epilepticus [Recovered/Resolved]
  - Pneumonia [Recovered/Resolved]

NARRATIVE: CASE EVENT DATE: 20161105
